FAERS Safety Report 9383167 (Version 3)
Quarter: 2013Q3

REPORT INFORMATION
  Report Type: Spontaneous
  Country: IT (occurrence: IT)
  Receive Date: 20130704
  Receipt Date: 20130730
  Transmission Date: 20140515
  Serious: Yes (Hospitalization)
  Sender: FDA-Public Use
  Company Number: IT-BRISTOL-MYERS SQUIBB COMPANY-19059153

PATIENT
  Age: 87 Year
  Sex: Female

DRUGS (6)
  1. COUMADIN TABS 5 MG [Suspect]
     Indication: DEEP VEIN THROMBOSIS
     Route: 048
     Dates: start: 20130107, end: 20130625
  2. BISOPROLOL HEMIFUMARATE [Concomitant]
  3. OMEPRAZOLE [Concomitant]
  4. LASIX [Concomitant]
     Dosage: TABS
  5. LOSARTAN [Concomitant]
     Dosage: TABS
  6. DILTIAZEM HCL [Concomitant]
     Dosage: CAPS

REACTIONS (2)
  - Subdural haematoma [Not Recovered/Not Resolved]
  - Fall [Unknown]
